FAERS Safety Report 17776242 (Version 9)
Quarter: 2020Q4

REPORT INFORMATION
  Report Type: Spontaneous
  Country: US (occurrence: US)
  Receive Date: 20200513
  Receipt Date: 20201002
  Transmission Date: 20210113
  Serious: No
  Sender: FDA-Public Use
  Company Number: US-PFIZER INC-2020177752

PATIENT
  Age: 11 Year
  Sex: Male
  Weight: 29 kg

DRUGS (11)
  1. GENOTROPIN [Suspect]
     Active Substance: SOMATROPIN
     Indication: GROWTH HORMONE DEFICIENCY
     Dosage: UNK
     Dates: start: 201303
  2. HYDROCORTISONE. [Concomitant]
     Active Substance: HYDROCORTISONE
     Dosage: UNK
  3. DESMOPRESSIN [Concomitant]
     Active Substance: DESMOPRESSIN
     Indication: DIABETES INSIPIDUS
     Dosage: 0.1 MG  (ON 0.1 MG TABLET AND A 0.2 MG TABLET)
  4. GENOTROPIN [Suspect]
     Active Substance: SOMATROPIN
     Indication: ATTENTION DEFICIT HYPERACTIVITY DISORDER
     Dosage: 1.2 MG
     Dates: start: 2007
  5. HYDROCORTISONE. [Concomitant]
     Active Substance: HYDROCORTISONE
     Dosage: 100 MG AND IT SAYS INJECT 2 ML
  6. DIAZEPAM. [Concomitant]
     Active Substance: DIAZEPAM
     Indication: SEIZURE
     Dosage: 7.5 MG, AS NEEDED
  7. GENOTROPIN [Suspect]
     Active Substance: SOMATROPIN
     Dosage: 1.2 MG, DAILY
     Dates: start: 20180505
  8. RISPERIDONE. [Concomitant]
     Active Substance: RISPERIDONE
     Dosage: 0.5 MG (ON 1 MG AND THEN ALSO ON 0.5 MG)
  9. DESMOPRESSIN [Concomitant]
     Active Substance: DESMOPRESSIN
     Dosage: 0.2 MG  (ON 0.1 MG TABLET AND A 0.2 MG TABLET)
  10. RISPERIDONE. [Concomitant]
     Active Substance: RISPERIDONE
     Dosage: 1 MG (ON 1 MG AND THEN ALSO ON 0.5 MG)
  11. SYNTHROID [Concomitant]
     Active Substance: LEVOTHYROXINE SODIUM
     Indication: THYROID DISORDER
     Dosage: 37.5 UG, DAILY (75 MCG, TABLET, BUT HE ONLY TAKES HALF A DAY)
     Route: 048

REACTIONS (4)
  - Device breakage [Unknown]
  - Wrong technique in device usage process [Unknown]
  - Device issue [Unknown]
  - Drug dose omission by device [Unknown]
